FAERS Safety Report 7496303-7 (Version None)
Quarter: 2011Q2

REPORT INFORMATION
  Report Type: 
  Country: None (occurrence: None)
  Receive Date: 20110523
  Receipt Date: 20110517
  Transmission Date: 20111010
  Serious: Yes (Other)
  Sender: FDA-Public Use
  Company Number: SE-PFIZER INC-2011105263

PATIENT
  Age: 32 Year
  Sex: Male

DRUGS (1)
  1. LYRICA [Suspect]
     Dosage: 3 G, 1X/DAY
     Route: 048

REACTIONS (1)
  - DRUG ABUSE [None]
